FAERS Safety Report 6590920-4 (Version None)
Quarter: 2010Q1

REPORT INFORMATION
  Report Type: 
  Country: None (occurrence: None)
  Receive Date: 20100219
  Receipt Date: 20100208
  Transmission Date: 20100710
  Serious: Yes (Hospitalization, Other)
  Sender: FDA-Public Use
  Company Number: US-ELI_LILLY_AND_COMPANY-US201002002060

PATIENT
  Sex: Male
  Weight: 129.71 kg

DRUGS (9)
  1. BYETTA [Suspect]
     Indication: TYPE 2 DIABETES MELLITUS
     Dosage: 10 UG, UNK
     Route: 058
     Dates: start: 20070101
  2. BYETTA [Suspect]
     Dosage: 10 UG, 2/D
     Route: 058
     Dates: end: 20100206
  3. METFORMIN HCL [Concomitant]
     Dosage: 1000 MG, 2/D
  4. GLYBURIDE [Concomitant]
     Dosage: 5 MG, 2/D
  5. ACCUPRIL [Concomitant]
     Dosage: 20 MG, 2/D
  6. NORVASC [Concomitant]
     Dosage: 10 MG, DAILY (1/D)
  7. COZAAR [Concomitant]
     Dosage: 50 MG, DAILY (1/D)
  8. CLARITIN [Concomitant]
     Dosage: UNK, DAILY (1/D)
  9. PRILOSEC [Concomitant]
     Dosage: UNK, DAILY (1/D)

REACTIONS (4)
  - ABDOMINAL PAIN UPPER [None]
  - NON-CARDIAC CHEST PAIN [None]
  - PANCREATIC ENZYMES INCREASED [None]
  - PANCREATITIS [None]
